FAERS Safety Report 7620387-6 (Version None)
Quarter: 2011Q3

REPORT INFORMATION
  Report Type: 
  Country: None (occurrence: None)
  Receive Date: 20110718
  Receipt Date: 20110718
  Transmission Date: 20111222
  Serious: Yes (Hospitalization)
  Sender: FDA-Public Use
  Company Number: None

PATIENT
  Age: 30 Year
  Sex: Female
  Weight: 96.615 kg

DRUGS (11)
  1. LOVENOX [Concomitant]
     Route: 058
  2. FENTANYL-100 [Concomitant]
     Route: 062
  3. CIPROFLOXACIN [Concomitant]
     Route: 048
  4. ATIVAN [Concomitant]
     Route: 048
  5. MECLIZINE [Concomitant]
     Route: 048
  6. MAGNESIUM OXIDE [Concomitant]
     Route: 048
  7. PRILOSEC [Concomitant]
     Route: 048
  8. THEO-DUR [Concomitant]
     Route: 048
  9. POTASSIUM PHOSPHATES [Concomitant]
     Route: 048
  10. TRABECTEDIN [Suspect]
     Indication: SARCOMA
     Dosage: 3MG
     Route: 041
     Dates: start: 20110706, end: 20110707
  11. DILAUDID [Concomitant]
     Route: 048

REACTIONS (11)
  - PANCYTOPENIA [None]
  - FATIGUE [None]
  - NEOPLASM PROGRESSION [None]
  - SARCOMA [None]
  - DYSPNOEA [None]
  - PYREXIA [None]
  - PLEURAL EFFUSION [None]
  - HYPOXIA [None]
  - DIZZINESS [None]
  - NAUSEA [None]
  - BLOOD CREATINE INCREASED [None]
